FAERS Safety Report 9820054 (Version 1)
Quarter: 2013Q4

REPORT INFORMATION
  Report Type: Spontaneous
  Country: US (occurrence: None)
  Receive Date: 20131015
  Receipt Date: 20131015
  Transmission Date: 20140711
  Serious: Yes (Other)
  Sender: FDA-Public Use
  Company Number: FK201202874

PATIENT
  Age: 79 Year
  Sex: 0

DRUGS (2)
  1. DEXAMETHASONE [Suspect]
     Indication: PLASMA CELL MYELOMA
  2. VELCADE [Suspect]
     Indication: PLASMA CELL MYELOMA

REACTIONS (1)
  - Pyrexia [None]
